FAERS Safety Report 12038295 (Version 1)
Quarter: 2016Q1

REPORT INFORMATION
  Report Type: Spontaneous
  Country: US (occurrence: US)
  Receive Date: 20160208
  Receipt Date: 20160208
  Transmission Date: 20160526
  Serious: Yes (Death, Hospitalization, Other)
  Sender: FDA-Public Use
  Company Number: US-ACTAVIS-2016-02537

PATIENT
  Age: 67 Year
  Sex: Female

DRUGS (1)
  1. PREDNISONE (WATSON LABORATORIES) [Suspect]
     Active Substance: PREDNISONE
     Indication: ASTHMA
     Dosage: 60 MG, BID
     Route: 065

REACTIONS (5)
  - Bronchopulmonary aspergillosis [Fatal]
  - Septic shock [Fatal]
  - Streptococcal bacteraemia [Unknown]
  - Cerebral aspergillosis [Fatal]
  - Staphylococcal bacteraemia [Unknown]
